FAERS Safety Report 19575902 (Version 1)
Quarter: 2021Q3

REPORT INFORMATION
  Report Type: Spontaneous
  Country: US (occurrence: US)
  Receive Date: 20210717
  Receipt Date: 20210717
  Transmission Date: 20211014
  Serious: No
  Sender: FDA-Public Use
  Company Number: None

PATIENT
  Age: 32 Year
  Sex: Female
  Weight: 67.5 kg

DRUGS (2)
  1. NEUTROGENA BEACH DEFENSE WATER PLUS SUN PROTECTION SUNSCREEN BROAD SPECTRUM SPF30 [Suspect]
     Active Substance: AVOBENZONE\HOMOSALATE\OCTISALATE\OCTOCRYLENE\OXYBENZONE
     Indication: PROPHYLAXIS AGAINST SOLAR RADIATION
     Dosage: QUANTITY:1 SPRAY(S);OTHER FREQUENCY:AS NEEDED;?
     Route: 058
     Dates: start: 20210619, end: 20210703
  2. PLEXUS [Concomitant]

REACTIONS (8)
  - Application site erythema [None]
  - Skin fissures [None]
  - Application site swelling [None]
  - Urticaria [None]
  - Haemorrhage [None]
  - Pruritus [None]
  - Skin irritation [None]
  - Skin exfoliation [None]

NARRATIVE: CASE EVENT DATE: 20210703
